FAERS Safety Report 8221066-7 (Version None)
Quarter: 2012Q1

REPORT INFORMATION
  Report Type: 
  Country: None (occurrence: None)
  Receive Date: 20120320
  Receipt Date: 20120307
  Transmission Date: 20120608
  Serious: Yes (Hospitalization)
  Sender: FDA-Public Use
  Company Number: CA-ELI_LILLY_AND_COMPANY-CA201203002378

PATIENT
  Age: 70 Year
  Sex: Female

DRUGS (7)
  1. CELEXA [Concomitant]
  2. MAGNESIUM [Concomitant]
  3. MULTI-VITAMINS [Concomitant]
  4. VITAMIN D [Concomitant]
  5. CALCIUM CARBONATE [Concomitant]
  6. FORTEO [Suspect]
     Indication: OSTEOPOROSIS
     Dosage: 20 UG, QD
     Route: 058
     Dates: start: 20111212
  7. GLUCOSAMINE + CHONDROITIN [Concomitant]

REACTIONS (1)
  - SPINAL LAMINECTOMY [None]
